FAERS Safety Report 5571077-5 (Version None)
Quarter: 2007Q4

REPORT INFORMATION
  Report Type: 
  Country: None (occurrence: None)
  Receive Date: 20071221
  Receipt Date: 20071030
  Transmission Date: 20080405
  Serious: Yes (Other)
  Sender: FDA-Public Use
  Company Number: US-PURDUE-USA_2007_0030225

PATIENT
  Sex: Male

DRUGS (2)
  1. ATIVAN [Concomitant]
     Indication: DRUG USE FOR UNKNOWN INDICATION
     Dosage: 2 MG, NOCTE
     Route: 048
  2. OXYCONTIN [Suspect]
     Indication: PAIN
     Dosage: 60 MG, UNK
     Route: 048

REACTIONS (8)
  - DRUG DEPENDENCE [None]
  - EUPHORIC MOOD [None]
  - HAEMORRHOID OPERATION [None]
  - SELF INJURIOUS BEHAVIOUR [None]
  - SOCIAL AVOIDANT BEHAVIOUR [None]
  - SOMNOLENCE [None]
  - THERAPEUTIC RESPONSE DECREASED [None]
  - VOMITING [None]
